FAERS Safety Report 7004944-6 (Version None)
Quarter: 2010Q3

REPORT INFORMATION
  Report Type: 
  Country: None (occurrence: None)
  Receive Date: 20100920
  Receipt Date: 20100920
  Transmission Date: 20110219
  Serious: Yes (Hospitalization, Disabling)
  Sender: FDA-Public Use
  Company Number: None

PATIENT
  Sex: Female
  Weight: 108.8633 kg

DRUGS (1)
  1. RISPERDAL [Suspect]
     Indication: BIPOLAR DISORDER
     Dosage: 25 MG IM 1 EVERY 4 WKS
     Route: 030
     Dates: start: 20090901

REACTIONS (3)
  - ARRHYTHMIA [None]
  - PALPITATIONS [None]
  - TACHYCARDIA [None]
